FAERS Safety Report 17011284 (Version 1)
Quarter: 2019Q4

REPORT INFORMATION
  Report Type: Spontaneous
  Country: US (occurrence: US)
  Receive Date: 20191001
  Receipt Date: 20191001
  Transmission Date: 20200122
  Serious: No
  Sender: FDA-Public Use
  Company Number: None

PATIENT
  Age: 10 Year
  Sex: Female

DRUGS (1)
  1. LEVOTHROID [Suspect]
     Active Substance: LEVOTHYROXINE SODIUM
     Dates: start: 201809

REACTIONS (2)
  - Sleep disorder [None]
  - Wrong strength [None]

NARRATIVE: CASE EVENT DATE: 20190909
